FAERS Safety Report 9001137 (Version 1)
Quarter: 2013Q1

REPORT INFORMATION
  Report Type: Spontaneous
  Country: US (occurrence: US)
  Receive Date: 20130107
  Receipt Date: 20130107
  Transmission Date: 20140127
  Serious: Yes (Hospitalization)
  Sender: FDA-Public Use
  Company Number: US-VERTEX PHARMACEUTICALS INC.-2013-000175

PATIENT
  Sex: Female
  Weight: 72 kg

DRUGS (6)
  1. INCIVEK [Suspect]
     Indication: HEPATITIS C
     Dosage: 750 MG, TID
     Route: 048
  2. INCIVEK [Suspect]
     Dosage: 750 MG, TID
     Route: 048
     Dates: start: 201212
  3. RIBAVIRIN [Suspect]
     Indication: HEPATITIS C
     Dosage: UNK
  4. RIBAVIRIN [Suspect]
     Dosage: UNK
     Dates: start: 201212
  5. PEGASYS [Suspect]
     Indication: HEPATITIS C
     Dosage: UNK
  6. PEGASYS [Suspect]
     Dosage: UNK
     Dates: start: 201212

REACTIONS (1)
  - Blood potassium decreased [Unknown]
